FAERS Safety Report 8949527 (Version 2)
Quarter: 2013Q1

REPORT INFORMATION
  Report Type: Spontaneous
  Country: US (occurrence: US)
  Receive Date: 20121206
  Receipt Date: 20130104
  Transmission Date: 20140127
  Serious: Yes (Other)
  Sender: FDA-Public Use
  Company Number: US-ALLERGAN-1214719US

PATIENT
  Age: 28 Year
  Sex: Female

DRUGS (7)
  1. RESTASIS [Suspect]
     Indication: LACRIMAL DISORDER
     Dosage: 2 GTT, BID
     Route: 047
     Dates: start: 20121001, end: 20121017
  2. RESTASIS [Suspect]
     Indication: BLEPHARITIS
  3. RESTASIS [Suspect]
     Indication: DRY EYE
  4. RESTASIS [Suspect]
     Indication: LACRIMAL DISORDER
  5. ERYTHROMYCIN [Suspect]
     Indication: BLEPHARITIS
     Dosage: 2 GTT, BID
     Route: 047
     Dates: start: 20121001
  6. MOTILIUM [Concomitant]
     Indication: PRODUCT USED FOR UNKNOWN INDICATION
     Route: 048
  7. DOMPERIDONE [Concomitant]
     Indication: IMPAIRED GASTRIC EMPTYING
     Dosage: 10 MG, BID
     Route: 048

REACTIONS (2)
  - Chest discomfort [Recovered/Resolved]
  - Dyspnoea [Recovered/Resolved]
